FAERS Safety Report 12600514 (Version 1)
Quarter: 2016Q3

REPORT INFORMATION
  Report Type: Spontaneous
  Country: US (occurrence: US)
  Receive Date: 20160727
  Receipt Date: 20160727
  Transmission Date: 20161109
  Serious: No
  Sender: FDA-Public Use
  Company Number: US-009507513-1607USA005513

PATIENT
  Sex: Female

DRUGS (1)
  1. NEXPLANON [Suspect]
     Active Substance: ETONOGESTREL
     Dosage: ONE INSERTION/3 YEARS
     Route: 059
     Dates: start: 20140116, end: 20160712

REACTIONS (2)
  - Device breakage [Recovered/Resolved]
  - No adverse event [Unknown]
